FAERS Safety Report 9647999 (Version 1)
Quarter: 2013Q4

REPORT INFORMATION
  Report Type: Spontaneous
  Country: US (occurrence: US)
  Receive Date: 20131028
  Receipt Date: 20131028
  Transmission Date: 20140711
  Serious: No
  Sender: FDA-Public Use
  Company Number: US-PFIZER INC-2013304780

PATIENT
  Age: 57 Year
  Sex: Male
  Weight: 79.37 kg

DRUGS (3)
  1. LYRICA [Suspect]
     Indication: NEURALGIA
     Dosage: 200 MG, 3X/DAY
     Dates: start: 2011
  2. ANUCORT-HC [Concomitant]
     Indication: HAEMORRHOIDS
     Dosage: 25 MG, 3X/DAY
  3. ATENOLOL [Concomitant]
     Indication: HYPERTENSION
     Dosage: 50 MG, DAILY

REACTIONS (1)
  - Genital paraesthesia [Not Recovered/Not Resolved]
